FAERS Safety Report 4789147-8 (Version None)
Quarter: 2005Q4

REPORT INFORMATION
  Report Type: 
  Country: None (occurrence: None)
  Receive Date: 20051005
  Receipt Date: 20050923
  Transmission Date: 20060501
  Serious: Yes (Hospitalization, Other)
  Sender: FDA-Public Use
  Company Number: DE-MERCK-0509DEU00162

PATIENT
  Age: 50 Year

DRUGS (1)
  1. ZOCOR [Suspect]
     Route: 048

REACTIONS (3)
  - BRONCHIAL CARCINOMA [None]
  - MYOPATHY [None]
  - PNEUMONIA [None]
